FAERS Safety Report 9264860 (Version 8)
Quarter: 2013Q4

REPORT INFORMATION
  Report Type: Report from Study
  Country: BR (occurrence: BR)
  Receive Date: 20130501
  Receipt Date: 20131106
  Transmission Date: 20140711
  Serious: Yes (Life-Threatening, Hospitalization)
  Sender: FDA-Public Use
  Company Number: PHHO2013BR005842

PATIENT
  Age: 62 Year
  Sex: Male
  Weight: 69.2 kg

DRUGS (28)
  1. PROGRAF [Suspect]
     Indication: RENAL TRANSPLANT
     Dosage: 7 MG, BID
     Route: 048
     Dates: start: 20130127, end: 20130130
  2. PROGRAF [Suspect]
     Dosage: 5 MG, BID
     Route: 048
     Dates: start: 20130131, end: 20130131
  3. PROGRAF [Suspect]
     Dosage: 4 MG, BID
     Route: 048
     Dates: start: 20130201, end: 20130310
  4. PROGRAF [Suspect]
     Dosage: 5 MG, BID
     Route: 048
     Dates: start: 20130311, end: 20130418
  5. PROGRAF [Suspect]
     Dosage: 3 MG, BID
     Route: 048
     Dates: start: 20130419, end: 20130509
  6. PROGRAF [Suspect]
     Dosage: 2 MG, BID
     Route: 048
     Dates: start: 20130510, end: 20130714
  7. PROGRAF [Suspect]
     Dosage: 1 MG, BID
     Route: 048
     Dates: start: 20130715, end: 20130731
  8. PROGRAF [Suspect]
     Dosage: 2 MG, BID
     Route: 048
     Dates: start: 20130801, end: 20130813
  9. PROGRAF [Suspect]
     Dosage: 3 MG, BID
     Route: 048
     Dates: start: 20130814, end: 20131002
  10. MYCOPHENOLATE [Suspect]
     Indication: RENAL TRANSPLANT
     Dosage: 720 MG, BID
     Route: 048
     Dates: start: 20130127, end: 20130321
  11. MYCOPHENOLATE [Suspect]
     Dosage: 360 MG, BID
     Route: 048
     Dates: start: 20130322, end: 20130404
  12. MYCOPHENOLATE [Suspect]
     Dosage: 540 MG, BID
     Route: 048
     Dates: start: 20130405, end: 20130509
  13. MYCOPHENOLATE [Suspect]
     Dosage: 720 MG, BID
     Route: 048
     Dates: start: 20130510, end: 20130613
  14. MYCOPHENOLATE [Suspect]
     Dosage: 560 MG, BID
     Route: 048
     Dates: start: 20130614, end: 20130714
  15. MYCOPHENOLATE [Suspect]
     Dosage: 540 MG, BID
     Route: 048
     Dates: start: 20130715, end: 20130926
  16. MYCOPHENOLATE [Suspect]
     Dosage: 540 MG, BID
     Route: 048
     Dates: start: 20130927
  17. MYCOPHENOLATE [Suspect]
     Dosage: 540 MG, BID
     Route: 048
     Dates: start: 20131010
  18. PREDNISONE [Suspect]
     Indication: RENAL TRANSPLANT
     Dosage: 10 MG, QD
     Route: 048
     Dates: start: 20130128, end: 20130207
  19. PREDNISONE [Suspect]
     Dosage: 20 MG, QD
     Route: 048
     Dates: start: 20130208, end: 20130228
  20. PREDNISONE [Suspect]
     Dosage: 10 MG, QD
     Route: 048
     Dates: start: 20130301, end: 20130321
  21. PREDNISONE [Suspect]
     Dosage: 20 MG, QD
     Route: 048
     Dates: start: 20130322, end: 20130418
  22. PREDNISONE [Suspect]
     Dosage: 10 MG, QD
     Route: 048
     Dates: start: 20130419, end: 20130613
  23. PREDNISONE [Suspect]
     Dosage: 5 MG, QD
     Route: 048
     Dates: start: 20130614, end: 20130714
  24. PREDNISONE [Suspect]
     Dosage: 20 MG, QD
     Route: 048
     Dates: start: 20130715, end: 20130725
  25. PREDNISONE [Suspect]
     Dosage: 10 MG, QD
     Route: 048
     Dates: start: 20130726, end: 20130731
  26. PREDNISONE [Suspect]
     Dosage: 5 MG, QD
     Route: 048
     Dates: start: 20130801
  27. PREDNISONE [Suspect]
     Dosage: 5 MG, QD
     Route: 048
     Dates: start: 20131010, end: 20131017
  28. PREDNISONE [Suspect]
     Dosage: 10 MG, QD
     Route: 048
     Dates: start: 20131018

REACTIONS (3)
  - Erythema infectiosum [Recovered/Resolved]
  - Aplastic anaemia [Unknown]
  - Interstitial lung disease [Recovered/Resolved]
